FAERS Safety Report 20061234 (Version 1)
Quarter: 2021Q4

REPORT INFORMATION
  Report Type: Report from Study
  Country: FR (occurrence: None)
  Receive Date: 20211112
  Receipt Date: 20211112
  Transmission Date: 20220303
  Serious: Yes (Hospitalization)
  Sender: FDA-Public Use
  Company Number: 2021A551837

PATIENT
  Age: 29446 Day
  Sex: Female

DRUGS (3)
  1. DURVALUMAB [Suspect]
     Active Substance: DURVALUMAB
     Indication: Ovarian epithelial cancer
     Route: 042
     Dates: start: 20191022, end: 20210203
  2. OLAPARIB [Suspect]
     Active Substance: OLAPARIB
     Indication: Ovarian epithelial cancer
     Route: 048
     Dates: start: 20191022, end: 20200203
  3. BEVACIZUMAB [Suspect]
     Active Substance: BEVACIZUMAB
     Indication: Ovarian epithelial cancer
     Route: 042
     Dates: start: 20191022, end: 20200923

REACTIONS (2)
  - Myocarditis [Not Recovered/Not Resolved]
  - Electrocardiogram change [Recovered/Resolved]

NARRATIVE: CASE EVENT DATE: 20210212
